FAERS Safety Report 4631174-5 (Version None)
Quarter: 2005Q2

REPORT INFORMATION
  Report Type: 
  Country: None (occurrence: None)
  Receive Date: 20050407
  Receipt Date: 20050407
  Transmission Date: 20051028
  Serious: Yes (Hospitalization)
  Sender: FDA-Public Use
  Company Number: None

PATIENT
  Sex: Male
  Weight: 98.8842 kg

DRUGS (2)
  1. LINDANE [Suspect]
     Indication: ACARODERMATITIS
     Dosage: TWO APPLICATIONS ONE OUNCE EACH OVER 48 HOURS
     Dates: start: 20050224, end: 20050225
  2. CARDIZUM [Concomitant]

REACTIONS (2)
  - ATRIAL FIBRILLATION [None]
  - MUSCLE SPASMS [None]
